FAERS Safety Report 8865460 (Version 1)
Quarter: 2012Q4

REPORT INFORMATION
  Report Type: 
  Country: US (occurrence: US)
  Receive Date: 20121024
  Receipt Date: 20121024
  Transmission Date: 20130627
  Serious: No
  Sender: FDA-Public Use
  Company Number: US-AMGEN-USASP2012003445

PATIENT
  Sex: Female
  Weight: 79.37 kg

DRUGS (13)
  1. ENBREL [Suspect]
     Indication: PRODUCT USED FOR UNKNOWN INDICATION
     Dosage: 50 mg, qwk
     Route: 058
  2. SYNTHROID [Concomitant]
     Dosage: 200 mug, UNK
  3. FORTEO [Concomitant]
     Dosage: UNK
  4. COREG [Concomitant]
     Dosage: 25 mg, UNK
  5. ADALAT [Concomitant]
     Dosage: 60 mg, UNK
  6. ENALAPRIL [Concomitant]
     Dosage: 2.5 mg, UNK
  7. ACIDOPHILUS [Concomitant]
     Dosage: 100 mg, UNK
  8. NAPROSYN                           /00256202/ [Concomitant]
     Dosage: 250 mg, UNK
  9. POTASSIUM [Concomitant]
     Dosage: 95 mg, UNK
  10. CO Q 10 [Concomitant]
     Dosage: 10 mg, UNK
  11. VITAMIN B-12 [Concomitant]
     Dosage: 500 mug, UNK
  12. VITAMIN D /00107901/ [Concomitant]
     Dosage: 1000 IU, UNK
  13. OMEGA 3                            /01334101/ [Concomitant]
     Dosage: 300 mg, UNK

REACTIONS (1)
  - Oral herpes [Unknown]
